FAERS Safety Report 11047283 (Version 1)
Quarter: 2015Q2

REPORT INFORMATION
  Report Type: Spontaneous
  Country: AU (occurrence: None)
  Receive Date: 20150416
  Receipt Date: 20150416
  Transmission Date: 20150821
  Serious: Yes (Other)
  Sender: FDA-Public Use
  Company Number: 2015-11045

PATIENT
  Age: 81 Year
  Sex: Male

DRUGS (1)
  1. EYLEA [Suspect]
     Active Substance: AFLIBERCEPT
     Indication: AGE-RELATED MACULAR DEGENERATION
     Dosage: 2 MG MILLIGRAM(S), Q6WEEKS
     Route: 031

REACTIONS (4)
  - Inappropriate schedule of drug administration [None]
  - Vitreous floaters [None]
  - Gastric infection [None]
  - Malaise [None]

NARRATIVE: CASE EVENT DATE: 201503
